FAERS Safety Report 25985295 (Version 1)
Quarter: 2025Q4

REPORT INFORMATION
  Report Type: Spontaneous
  Country: US (occurrence: US)
  Receive Date: 20251031
  Receipt Date: 20251031
  Transmission Date: 20260117
  Serious: No
  Sender: Tarsus Pharmaceuticals
  Company Number: US-TARSUS PHARMACEUTICALS-TSP-US-2025-000902

PATIENT

DRUGS (1)
  1. XDEMVY [Suspect]
     Active Substance: LOTILANER
     Indication: Blepharitis
     Dosage: 1 DROP, BID (1 DROP IN EACH EYE TWICE A DAY FOR SIX WEEKS)
     Route: 047
     Dates: start: 202506, end: 202506

REACTIONS (6)
  - Ulcerative keratitis [Unknown]
  - Eye pruritus [Recovered/Resolved]
  - Vision blurred [Recovered/Resolved]
  - Eye pain [Recovered/Resolved]
  - Ocular discomfort [Recovered/Resolved]
  - Neurotrophic keratopathy [Unknown]

NARRATIVE: CASE EVENT DATE: 20250601
